FAERS Safety Report 7292427-8 (Version None)
Quarter: 2011Q1

REPORT INFORMATION
  Report Type: 
  Country: None (occurrence: None)
  Receive Date: 20110215
  Receipt Date: 20110209
  Transmission Date: 20110831
  Serious: No
  Sender: FDA-Public Use
  Company Number: US-PFIZER INC-2011029921

PATIENT
  Sex: Male
  Weight: 79 kg

DRUGS (1)
  1. GEODON [Suspect]
     Indication: SCHIZOPHRENIA, PARANOID TYPE
     Dosage: 80MG IN MORNING AND 160MG AT NIGHT, 2X/DAY
     Route: 048
     Dates: start: 20030101

REACTIONS (4)
  - MEMORY IMPAIRMENT [None]
  - FEELING ABNORMAL [None]
  - BLOOD TRIGLYCERIDES INCREASED [None]
  - ANXIETY [None]
